FAERS Safety Report 18244434 (Version 1)
Quarter: 2020Q3

REPORT INFORMATION
  Report Type: Report from Study
  Country: US (occurrence: US)
  Receive Date: 20200908
  Receipt Date: 20200908
  Transmission Date: 20201103
  Serious: Yes (Hospitalization, Other)
  Sender: FDA-Public Use
  Company Number: US-JNJFOC-A-NJ2016-147674

PATIENT
  Age: 44 Year
  Sex: Female
  Weight: 121.54 kg

DRUGS (10)
  1. VELETRI [Suspect]
     Active Substance: EPOPROSTENOL
     Dosage: 32 NG/KG, PER MIN
     Route: 042
  2. CEPHALEXIN [CEFALEXIN] [Suspect]
     Active Substance: CEPHALEXIN
     Indication: PRODUCT USED FOR UNKNOWN INDICATION
     Route: 065
  3. VELETRI [Suspect]
     Active Substance: EPOPROSTENOL
     Indication: PULMONARY HYPERTENSION
     Dosage: 33 NG/KG, PER MIN
     Route: 042
  4. VELETRI [Suspect]
     Active Substance: EPOPROSTENOL
     Dosage: 32 NG/KG, PER MIN
     Route: 042
  5. VELETRI [Suspect]
     Active Substance: EPOPROSTENOL
     Dosage: 30 NG/KG, PER MIN
     Route: 042
     Dates: start: 20140724
  6. VELETRI [Suspect]
     Active Substance: EPOPROSTENOL
     Dosage: 40 NG/KG, PER MIN
     Route: 042
  7. SILDENAFIL. [Concomitant]
     Active Substance: SILDENAFIL
  8. OPSUMIT [Concomitant]
     Active Substance: MACITENTAN
     Indication: PULMONARY HYPERTENSION
  9. WARFARIN [Concomitant]
     Active Substance: WARFARIN
  10. TRAZODONE [Suspect]
     Active Substance: TRAZODONE HYDROCHLORIDE
     Indication: PRODUCT USED FOR UNKNOWN INDICATION
     Route: 065

REACTIONS (41)
  - Migraine [Unknown]
  - Oedema peripheral [Unknown]
  - Lipase increased [Unknown]
  - Fall [Unknown]
  - Catheter site infection [Unknown]
  - Influenza B virus test positive [Not Recovered/Not Resolved]
  - Cystitis [Unknown]
  - Fatigue [Unknown]
  - Influenza [Unknown]
  - Device related infection [Unknown]
  - Cardiac flutter [Unknown]
  - Device malfunction [Recovered/Resolved]
  - Weight decreased [Unknown]
  - Malaise [Unknown]
  - Blood potassium decreased [Unknown]
  - Dyspnoea exertional [Not Recovered/Not Resolved]
  - Asthenia [Unknown]
  - Dyspnoea [Unknown]
  - Condition aggravated [Unknown]
  - Pain in extremity [Not Recovered/Not Resolved]
  - Vomiting [Unknown]
  - Pain [Unknown]
  - Colitis [Unknown]
  - Nausea [Unknown]
  - Pancreatitis acute [Unknown]
  - Catheter management [Recovered/Resolved]
  - Diarrhoea [Unknown]
  - Urinary tract infection [Unknown]
  - Device related thrombosis [Recovered/Resolved]
  - Pain in jaw [Unknown]
  - Insomnia [Not Recovered/Not Resolved]
  - Rash [Recovered/Resolved]
  - Weight increased [Unknown]
  - Palpitations [Unknown]
  - Oxygen consumption increased [Unknown]
  - White blood cell count increased [Unknown]
  - Nasopharyngitis [Unknown]
  - Loss of consciousness [Unknown]
  - Pyrexia [Unknown]
  - Muscle spasms [Unknown]
  - Malaise [Unknown]

NARRATIVE: CASE EVENT DATE: 201706
